FAERS Safety Report 19743741 (Version 1)
Quarter: 2021Q3

REPORT INFORMATION
  Report Type: Spontaneous
  Country: US (occurrence: US)
  Receive Date: 20210823
  Receipt Date: 20210823
  Transmission Date: 20211014
  Serious: No
  Sender: FDA-Public Use
  Company Number: None

PATIENT
  Age: 54 Year
  Sex: Female
  Weight: 78.3 kg

DRUGS (1)
  1. BENLYSTA [Suspect]
     Active Substance: BELIMUMAB
     Indication: SYSTEMIC LUPUS ERYTHEMATOSUS
     Route: 058
     Dates: start: 20210720, end: 20210804

REACTIONS (6)
  - Asthenia [None]
  - Chest discomfort [None]
  - Nausea [None]
  - Headache [None]
  - Fatigue [None]
  - Vomiting [None]

NARRATIVE: CASE EVENT DATE: 20210804
